FAERS Safety Report 12483504 (Version 1)
Quarter: 2016Q2

REPORT INFORMATION
  Report Type: Spontaneous
  Country: US (occurrence: US)
  Receive Date: 20160621
  Receipt Date: 20160621
  Transmission Date: 20160815
  Serious: Yes (Hospitalization)
  Sender: FDA-Public Use
  Company Number: US-BAUSCH-BL-2016-003216

PATIENT
  Age: 18 Year
  Sex: Female

DRUGS (1)
  1. XENAZINE [Suspect]
     Active Substance: TETRABENAZINE
     Indication: HUNTINGTON^S DISEASE
     Route: 048
     Dates: start: 20140821

REACTIONS (3)
  - Hospitalisation [Unknown]
  - Micturition frequency decreased [Unknown]
  - Urine output increased [Unknown]

NARRATIVE: CASE EVENT DATE: 20160114
